FAERS Safety Report 24603844 (Version 1)
Quarter: 2024Q4

REPORT INFORMATION
  Report Type: Spontaneous
  Country: US (occurrence: None)
  Receive Date: 20241110
  Receipt Date: 20241110
  Transmission Date: 20250114
  Serious: No
  Sender: Public
  Company Number: None

PATIENT
  Age: 47 Year
  Sex: Male
  Weight: 126 kg

DRUGS (1)
  1. AMMONIA [Suspect]
     Active Substance: AMMONIA
     Indication: Nasal congestion
     Dates: start: 20241001, end: 20241101

REACTIONS (1)
  - Aphthous ulcer [None]
